FAERS Safety Report 6336912-1 (Version None)
Quarter: 2009Q3

REPORT INFORMATION
  Report Type: 
  Country: None (occurrence: None)
  Receive Date: 20090901
  Receipt Date: 20090825
  Transmission Date: 20100115
  Serious: Yes (Death, Hospitalization, Other)
  Sender: FDA-Public Use
  Company Number: PHEH2008US09307

PATIENT
  Sex: Male

DRUGS (2)
  1. ZOMETA [Suspect]
     Dosage: 4MG
     Route: 042
  2. AREDIA [Suspect]

REACTIONS (40)
  - ANGINA UNSTABLE [None]
  - ANHEDONIA [None]
  - ANXIETY [None]
  - APNOEA [None]
  - ARTERIOSCLEROSIS CORONARY ARTERY [None]
  - ARTHRITIS [None]
  - CARDIOMEGALY [None]
  - CHEST PAIN [None]
  - CORONARY ARTERY BYPASS [None]
  - DEATH [None]
  - DECREASED APPETITE [None]
  - DENTAL CARIES [None]
  - DISEASE RECURRENCE [None]
  - DYSPHAGIA [None]
  - ESSENTIAL HYPERTENSION [None]
  - FATIGUE [None]
  - GAIT DISTURBANCE [None]
  - HEPATIC CYST [None]
  - HYPERLIPIDAEMIA [None]
  - HYPOAESTHESIA [None]
  - HYPOPHAGIA [None]
  - INJURY [None]
  - LIMB INJURY [None]
  - MALIGNANT PLEURAL EFFUSION [None]
  - MENTAL DISORDER [None]
  - METASTASES TO LUNG [None]
  - MONONEUROPATHY MULTIPLEX [None]
  - MYOCARDIAL INFARCTION [None]
  - NEURALGIA [None]
  - OEDEMA [None]
  - OEDEMA PERIPHERAL [None]
  - OSTEONECROSIS [None]
  - PAIN [None]
  - PERONEAL NERVE PALSY [None]
  - PLEURAL EFFUSION [None]
  - RENAL CANCER [None]
  - RESORPTION BONE INCREASED [None]
  - SWELLING [None]
  - TOOTH EXTRACTION [None]
  - TRICUSPID VALVE INCOMPETENCE [None]
